FAERS Safety Report 15539735 (Version 2)
Quarter: 2018Q4

REPORT INFORMATION
  Report Type: Report from Study
  Country: None (occurrence: US)
  Receive Date: 20181023
  Receipt Date: 20181027
  Transmission Date: 20190205
  Serious: Yes (Hospitalization)
  Sender: FDA-Public Use
  Company Number: US-ABBVIE-18K-163-2523706-00

PATIENT
  Sex: Female
  Weight: 72.64 kg

DRUGS (10)
  1. HUMIRA [Suspect]
     Active Substance: ADALIMUMAB
     Indication: PSORIATIC ARTHROPATHY
     Route: 058
     Dates: start: 201710, end: 201803
  2. CYMBALTA [Concomitant]
     Active Substance: DULOXETINE HYDROCHLORIDE
     Indication: ARTHRALGIA
  3. ALLOPURINOL. [Concomitant]
     Active Substance: ALLOPURINOL
     Indication: GOUT
  4. LASIX [Concomitant]
     Active Substance: FUROSEMIDE
     Indication: IGA NEPHROPATHY
  5. CALCITRIOL. [Concomitant]
     Active Substance: CALCITRIOL
     Indication: IGA NEPHROPATHY
  6. HUMIRA [Suspect]
     Active Substance: ADALIMUMAB
     Route: 058
     Dates: start: 201803, end: 201807
  7. HUMIRA [Suspect]
     Active Substance: ADALIMUMAB
     Route: 058
     Dates: start: 201809
  8. CALCITRIOL. [Concomitant]
     Active Substance: CALCITRIOL
     Indication: HYPERPARATHYROIDISM
  9. LUNESTA [Concomitant]
     Active Substance: ESZOPICLONE
     Indication: INSOMNIA
  10. LISINOPRIL. [Concomitant]
     Active Substance: LISINOPRIL
     Indication: IGA NEPHROPATHY

REACTIONS (12)
  - Blood parathyroid hormone increased [Recovered/Resolved]
  - Bone density abnormal [Not Recovered/Not Resolved]
  - Renal cyst [Not Recovered/Not Resolved]
  - Blood calcium increased [Recovered/Resolved]
  - Rectocele [Recovered/Resolved]
  - Adrenal insufficiency [Unknown]
  - Hyperparathyroidism [Unknown]
  - Nephrolithiasis [Not Recovered/Not Resolved]
  - Cystocele [Recovered/Resolved]
  - Rectal prolapse [Recovered/Resolved]
  - Parathyroid hyperplasia [Recovered/Resolved]
  - Staphylococcal infection [Recovered/Resolved]

NARRATIVE: CASE EVENT DATE: 2017
